FAERS Safety Report 9170644 (Version 1)
Quarter: 2013Q1

REPORT INFORMATION
  Report Type: Spontaneous
  Country: US (occurrence: US)
  Receive Date: 20130319
  Receipt Date: 20130319
  Transmission Date: 20140127
  Serious: Yes (Other)
  Sender: FDA-Public Use
  Company Number: US-JNJFOC-20130302819

PATIENT
  Age: 24 None
  Sex: Female
  Weight: 56.7 kg

DRUGS (1)
  1. ORTHO TRI-CYCLEN LO [Suspect]
     Indication: CONTRACEPTION
     Route: 048
     Dates: start: 201010

REACTIONS (2)
  - Muscle rupture [Recovered/Resolved]
  - Metrorrhagia [Not Recovered/Not Resolved]
